FAERS Safety Report 9912074 (Version 1)
Quarter: 2014Q1

REPORT INFORMATION
  Report Type: Report from Study
  Country: US (occurrence: US)
  Receive Date: 20140219
  Receipt Date: 20140219
  Transmission Date: 20141002
  Serious: Yes (Hospitalization)
  Sender: FDA-Public Use
  Company Number: PHEH2013US026759

PATIENT
  Sex: Female

DRUGS (4)
  1. AFINITOR [Suspect]
     Indication: BREAST CANCER METASTATIC
     Dosage: 10 MG, QD
     Route: 048
     Dates: start: 20130930
  2. AROMASIN [Concomitant]
  3. OXYCONTIN [Concomitant]
  4. PERCOCET [Concomitant]

REACTIONS (3)
  - Vision blurred [Recovering/Resolving]
  - Metastases to central nervous system [Recovering/Resolving]
  - Headache [Recovering/Resolving]
